FAERS Safety Report 5319233-5 (Version None)
Quarter: 2007Q2

REPORT INFORMATION
  Report Type: 
  Country: None (occurrence: None)
  Receive Date: 20070508
  Receipt Date: 20070425
  Transmission Date: 20071010
  Serious: Yes (Other)
  Sender: FDA-Public Use
  Company Number: PHEH2007US05154

PATIENT
  Age: 66 Year
  Sex: Female

DRUGS (1)
  1. ZELNORM [Suspect]
     Indication: IRRITABLE BOWEL SYNDROME
     Dosage: UNK, UNK
     Dates: start: 20061101, end: 20070405

REACTIONS (4)
  - CHEST PAIN [None]
  - MYOCARDIAL INFARCTION [None]
  - OCULAR HYPERAEMIA [None]
  - TRANSIENT ISCHAEMIC ATTACK [None]
